FAERS Safety Report 9078545 (Version 1)
Quarter: 2013Q1

REPORT INFORMATION
  Report Type: Report from Study
  Country: US (occurrence: US)
  Receive Date: 20130130
  Receipt Date: 20130130
  Transmission Date: 20140127
  Serious: Yes (Other)
  Sender: FDA-Public Use
  Company Number: US-ABBOTT-12P-163-0965082-00

PATIENT
  Age: 47 None
  Sex: Female

DRUGS (2)
  1. HUMIRA 40 MG/ 0.8 ML PRE-FILLED SYRINGE [Suspect]
     Indication: CROHN^S DISEASE
     Route: 058
  2. HUMIRA 40 MG/ 0.8 ML PRE-FILLED SYRINGE [Suspect]
     Dates: start: 20120729

REACTIONS (6)
  - Crohn^s disease [Unknown]
  - Sinus disorder [Unknown]
  - Oral herpes [Unknown]
  - Headache [Unknown]
  - Nasal congestion [Unknown]
  - Nasopharyngitis [Unknown]
